FAERS Safety Report 21669783 (Version 6)
Quarter: 2023Q1

REPORT INFORMATION
  Report Type: Report from Study
  Country: CH (occurrence: CH)
  Receive Date: 20221201
  Receipt Date: 20230323
  Transmission Date: 20230418
  Serious: Yes (Hospitalization)
  Sender: FDA-Public Use
  Company Number: CH-ABBVIE-4219415

PATIENT
  Age: 65 Year
  Sex: Female

DRUGS (7)
  1. CARBIDOPA\LEVODOPA [Suspect]
     Active Substance: CARBIDOPA\LEVODOPA
     Indication: Parkinson^s disease
     Dosage: MD: 2 ML, CRD: 3.3 ML/H, CRN 2.2 ML/H,  ED: 1.5 ML
     Route: 050
     Dates: start: 20230215
  2. CARBIDOPA\LEVODOPA [Suspect]
     Active Substance: CARBIDOPA\LEVODOPA
     Dosage: MD: 2.0 ML, CRD: 3.6, CRN: 2.2 ML/H, ED: 1.5, 24 HRS THERAPY
     Route: 050
     Dates: start: 20221202, end: 20221202
  3. CARBIDOPA\LEVODOPA [Suspect]
     Active Substance: CARBIDOPA\LEVODOPA
     Dosage: MD: 2.0 ML, CRD: 3.6, CRN: 2.2 ML/H, ED: 1.5?LAST ADMIN DATE: 2022
     Route: 050
     Dates: start: 20220426
  4. CARBIDOPA\LEVODOPA [Suspect]
     Active Substance: CARBIDOPA\LEVODOPA
     Dosage: MD: 2 ML, CRD: 3.3 ML/H ED: 1.5 ML, FREQUENCY: 24 HOUR THERAPY
     Route: 050
     Dates: start: 20221219, end: 20230109
  5. CARBIDOPA\LEVODOPA [Suspect]
     Active Substance: CARBIDOPA\LEVODOPA
     Dosage: FREQUENCY TEXT: 24 HOUR THERAPY
     Route: 050
     Dates: start: 20210914
  6. CARBIDOPA\LEVODOPA [Suspect]
     Active Substance: CARBIDOPA\LEVODOPA
     Dosage: MD: 2 ML, CRD: 3.3 ML/H, CRN 2.2 ML/H,   ED: 1.5 ML
     Route: 050
     Dates: start: 20230109, end: 20230214
  7. BENSERAZIDE HYDROCHLORIDE\LEVODOPA [Concomitant]
     Active Substance: BENSERAZIDE HYDROCHLORIDE\LEVODOPA
     Indication: Product used for unknown indication
     Dosage: MADOPAR LIQUID
     Route: 065

REACTIONS (17)
  - Derailment [Not Recovered/Not Resolved]
  - Enteral nutrition [Not Recovered/Not Resolved]
  - Fatigue [Not Recovered/Not Resolved]
  - Device occlusion [Recovered/Resolved]
  - Device occlusion [Recovered/Resolved]
  - Device dislocation [Unknown]
  - Delusion [Not Recovered/Not Resolved]
  - General physical health deterioration [Not Recovered/Not Resolved]
  - Persecutory delusion [Not Recovered/Not Resolved]
  - Off label use [Recovered/Resolved]
  - Device occlusion [Recovered/Resolved]
  - Cachexia [Not Recovered/Not Resolved]
  - Device issue [Not Recovered/Not Resolved]
  - Speech disorder [Not Recovered/Not Resolved]
  - Device-device incompatibility [Recovered/Resolved]
  - Asthenia [Not Recovered/Not Resolved]
  - Mental disorder [Not Recovered/Not Resolved]

NARRATIVE: CASE EVENT DATE: 20221101
